FAERS Safety Report 10247815 (Version 1)
Quarter: 2014Q2

REPORT INFORMATION
  Report Type: Report from Study
  Country: DK (occurrence: DE)
  Receive Date: 20140619
  Receipt Date: 20140619
  Transmission Date: 20141212
  Serious: Yes (Hospitalization)
  Sender: FDA-Public Use
  Company Number: DE-FRI-1000067604

PATIENT
  Sex: Male

DRUGS (7)
  1. CITALOPRAM [Suspect]
     Dosage: 40 MG
     Route: 048
     Dates: end: 20130406
  2. DUROGESIC [Interacting]
     Route: 062
     Dates: end: 20130406
  3. METOPROLOL [Interacting]
     Dosage: 47.5 MG
     Route: 048
  4. DIFLUCAN [Interacting]
     Dosage: 50 MG
     Route: 048
     Dates: start: 20130406
  5. NOVALGIN [Concomitant]
     Dosage: 4000 MG (=160 DROPS)
     Route: 048
  6. SORTIS [Concomitant]
     Dosage: 40 MG
     Route: 048
  7. TRANXILIUM [Concomitant]
     Route: 048

REACTIONS (5)
  - Delirium [Recovered/Resolved]
  - Loss of consciousness [Recovered/Resolved]
  - Suicidal ideation [Recovered/Resolved]
  - Serotonin syndrome [Recovered/Resolved]
  - Drug interaction [Recovered/Resolved]
